FAERS Safety Report 15129905 (Version 1)
Quarter: 2018Q3

REPORT INFORMATION
  Report Type: Spontaneous
  Country: DE (occurrence: DE)
  Receive Date: 20180711
  Receipt Date: 20180711
  Transmission Date: 20181010
  Serious: Yes (Other)
  Sender: FDA-Public Use
  Company Number: DE-AMGEN-DEUSP2018091333

PATIENT
  Age: 29 Year
  Sex: Female

DRUGS (2)
  1. DECORTIN [Concomitant]
     Active Substance: PREDNISONE
     Dosage: 5 MG, UNK
  2. NPLATE [Suspect]
     Active Substance: ROMIPLOSTIM
     Indication: IMMUNE THROMBOCYTOPENIC PURPURA
     Dosage: UNK
     Route: 065
     Dates: start: 201602

REACTIONS (2)
  - Osteonecrosis [Unknown]
  - Platelet count abnormal [Unknown]
